FAERS Safety Report 6234420-X (Version None)
Quarter: 2009Q2

REPORT INFORMATION
  Report Type: 
  Country: None (occurrence: None)
  Receive Date: 20090618
  Receipt Date: 20090609
  Transmission Date: 20091009
  Serious: Yes (Hospitalization)
  Sender: FDA-Public Use
  Company Number: AT-ROCHE-637111

PATIENT
  Sex: Female
  Weight: 83 kg

DRUGS (12)
  1. CAPECITABINE [Suspect]
     Dosage: FREQUENCY REPORTED AS 7 DAYS Q14
     Route: 048
     Dates: start: 20090312, end: 20090605
  2. BEVACIZUMAB [Suspect]
     Dosage: DOSAGE FORM REPORTED AS INFUSION
     Route: 042
     Dates: start: 20090312, end: 20090605
  3. OXALIPLATIN [Suspect]
     Dosage: DOSAGE FORM REPORTED AS INFUSION
     Route: 042
     Dates: start: 20090312, end: 20090605
  4. CO-MEPRIL [Concomitant]
     Dosage: TDD REPORTED AS 1 TABLET
     Dates: start: 20060301
  5. MEPRIL [Concomitant]
     Dates: start: 20060301
  6. MIXTARD HUMAN 70/30 [Concomitant]
     Dates: start: 20050301
  7. PANTOPRAZOLE SODIUM [Concomitant]
     Dates: start: 20050301
  8. NOMEXOR [Concomitant]
     Dates: start: 20060101
  9. TARDYFERON [Concomitant]
     Dates: start: 20060101
  10. DAFLON [Concomitant]
     Dates: start: 20060101
  11. SORTIS [Concomitant]
     Dates: start: 20060101
  12. HALCION [Concomitant]
     Dates: start: 20060101

REACTIONS (1)
  - PERFORMANCE STATUS DECREASED [None]
